FAERS Safety Report 15785641 (Version 2)
Quarter: 2019Q1

REPORT INFORMATION
  Report Type: Spontaneous
  Country: US (occurrence: US)
  Receive Date: 20190103
  Receipt Date: 20190214
  Transmission Date: 20190417
  Serious: Yes (Hospitalization, Other)
  Sender: FDA-Public Use
  Company Number: US-RARE DISEASE THERAPEUTICS, INC.-2060801

PATIENT
  Age: 6 Year
  Sex: Female

DRUGS (2)
  1. PURIXAN [Suspect]
     Active Substance: MERCAPTOPURINE
     Indication: B-CELL TYPE ACUTE LEUKAEMIA
     Route: 065
  2. MERCAPTOPURINE. [Suspect]
     Active Substance: MERCAPTOPURINE

REACTIONS (9)
  - Hypoglycaemia [Recovered/Resolved]
  - Vomiting [None]
  - Lactic acidosis [Unknown]
  - Bilirubin conjugated abnormal [Unknown]
  - Transaminases abnormal [Unknown]
  - Nausea [None]
  - Neutropenia [Recovered/Resolved]
  - Asthenia [None]
  - Ocular icterus [None]
